FAERS Safety Report 7461027-9 (Version None)
Quarter: 2011Q2

REPORT INFORMATION
  Report Type: 
  Country: None (occurrence: None)
  Receive Date: 20110505
  Receipt Date: 20110429
  Transmission Date: 20111010
  Serious: Yes (Death)
  Sender: FDA-Public Use
  Company Number: SA-GENZYME-FLUD-1001118

PATIENT

DRUGS (7)
  1. CYCLOPHOSPHAMIDE [Suspect]
     Indication: STEM CELL TRANSPLANT
     Dosage: 50 MG/KG, QDX4 ON DAYS -5, -4, -3, AND -2
     Route: 065
  2. FLUDARA [Suspect]
     Indication: STEM CELL TRANSPLANT
     Dosage: 30 MG/M2, QDX3 ON DAYS 9, -8, AND -7
     Route: 065
  3. METHOTREXATE [Concomitant]
     Dosage: 10 MG/M2, QDX2 ON DAYS +3 AND +6
  4. CYCLOPHOSPHAMIDE [Suspect]
     Indication: APLASTIC ANAEMIA
  5. CYCLOSPORINE [Concomitant]
     Indication: PROPHYLAXIS AGAINST GRAFT VERSUS HOST DISEASE
     Dosage: UNK
     Route: 065
  6. FLUDARA [Suspect]
     Indication: APLASTIC ANAEMIA
  7. METHOTREXATE [Concomitant]
     Indication: PROPHYLAXIS AGAINST GRAFT VERSUS HOST DISEASE
     Dosage: 50 MG/M2, QD ON DAY +1
     Route: 065

REACTIONS (1)
  - ACUTE GRAFT VERSUS HOST DISEASE [None]
